FAERS Safety Report 24809807 (Version 2)
Quarter: 2025Q1

REPORT INFORMATION
  Report Type: Report from Study
  Country: US (occurrence: US)
  Receive Date: 20250106
  Receipt Date: 20250207
  Transmission Date: 20250408
  Serious: Yes (Hospitalization, Other)
  Sender: BAYER HEALTHCARE PHARMACEUTICALS INC.
  Company Number: US-BAYER-2025A001315

PATIENT
  Age: 84 Year
  Sex: Female
  Weight: 41.723 kg

DRUGS (21)
  1. ADEMPAS [Suspect]
     Active Substance: RIOCIGUAT
     Indication: Pulmonary arterial hypertension
     Dates: start: 20230519
  2. ADEMPAS [Suspect]
     Active Substance: RIOCIGUAT
     Indication: Pulmonary arterial hypertension
     Dosage: 2.5 MG, TID
     Route: 048
  3. BIOTIN [Concomitant]
     Active Substance: BIOTIN
  4. FUROSEMIDE [Concomitant]
     Active Substance: FUROSEMIDE
  5. LEVOTHYROXINE SODIUM [Concomitant]
     Active Substance: LEVOTHYROXINE SODIUM
  6. FOLIC ACID [Concomitant]
     Active Substance: FOLIC ACID
  7. POTASSIUM CHLORIDE [Concomitant]
     Active Substance: POTASSIUM CHLORIDE
  8. PROLIA [Concomitant]
     Active Substance: DENOSUMAB
  9. LASIX [Concomitant]
     Active Substance: FUROSEMIDE
  10. ROSUVASTATIN CALCIUM [Concomitant]
     Active Substance: ROSUVASTATIN CALCIUM
  11. FLONASE ALLERGY RELIEF [Concomitant]
     Active Substance: FLUTICASONE PROPIONATE
  12. METHOTREXATE [Concomitant]
     Active Substance: METHOTREXATE
  13. SPIRONOLACTONE [Concomitant]
     Active Substance: SPIRONOLACTONE
  14. TUMS [Concomitant]
     Active Substance: CALCIUM CARBONATE
  15. GABAPENTIN [Concomitant]
     Active Substance: GABAPENTIN
  16. METOPROLOL TARTRATE [Concomitant]
     Active Substance: METOPROLOL TARTRATE
  17. PRILOSEC OTC [Concomitant]
     Active Substance: OMEPRAZOLE MAGNESIUM
  18. ASPIRIN [Concomitant]
     Active Substance: ASPIRIN
  19. Viactiv [Concomitant]
  20. MINOXIDIL [Concomitant]
     Active Substance: MINOXIDIL
  21. RESTASIS [Concomitant]
     Active Substance: CYCLOSPORINE

REACTIONS (6)
  - Illness [Not Recovered/Not Resolved]
  - Pneumonia [None]
  - Renal disorder [None]
  - Hospitalisation [None]
  - COVID-19 [None]
  - Product dose omission issue [None]

NARRATIVE: CASE EVENT DATE: 20240101
